FAERS Safety Report 9333371 (Version 1)
Quarter: 2013Q2

REPORT INFORMATION
  Report Type: Spontaneous
  Country: US (occurrence: US)
  Receive Date: 20130606
  Receipt Date: 20130606
  Transmission Date: 20140414
  Serious: No
  Sender: FDA-Public Use
  Company Number: US-LEHIGH_VALLEY-USA-2012POI058000052

PATIENT
  Age: 52 Year
  Sex: Female

DRUGS (5)
  1. OXYCODONE HCL ORAL SOLUTION [Suspect]
     Indication: CANCER PAIN
     Dates: start: 2010, end: 201201
  2. VALIUM [Concomitant]
  3. ULTRAM [Concomitant]
  4. FERGON [Concomitant]
     Route: 054
  5. ZANTAC [Concomitant]

REACTIONS (2)
  - Anger [Recovered/Resolved]
  - Product container seal issue [None]
